FAERS Safety Report 18572403 (Version 1)
Quarter: 2020Q4

REPORT INFORMATION
  Report Type: Report from Study
  Country: None (occurrence: US)
  Receive Date: 20201203
  Receipt Date: 20201203
  Transmission Date: 20210114
  Serious: Yes (Hospitalization)
  Sender: FDA-Public Use
  Company Number: US-ABBVIE-20K-163-3612207-00

PATIENT
  Age: 51 Year
  Sex: Female

DRUGS (2)
  1. HUMIRA [Suspect]
     Active Substance: ADALIMUMAB
     Indication: CROHN^S DISEASE
     Dosage: DAY 1
     Route: 058
     Dates: start: 20200910, end: 20200910
  2. HUMIRA [Suspect]
     Active Substance: ADALIMUMAB
     Dosage: DAY 15
     Route: 058
     Dates: start: 20200925, end: 20200925

REACTIONS (15)
  - Pyrexia [Not Recovered/Not Resolved]
  - Exposure to SARS-CoV-2 [Unknown]
  - Muscle spasms [Not Recovered/Not Resolved]
  - Hypoaesthesia [Recovering/Resolving]
  - Oropharyngeal pain [Unknown]
  - Headache [Unknown]
  - Nausea [Unknown]
  - Dehydration [Unknown]
  - Tremor [Unknown]
  - Paraesthesia [Not Recovered/Not Resolved]
  - Decreased appetite [Not Recovered/Not Resolved]
  - Insomnia [Unknown]
  - Weight decreased [Not Recovered/Not Resolved]
  - Diarrhoea [Not Recovered/Not Resolved]
  - Dizziness [Unknown]

NARRATIVE: CASE EVENT DATE: 2020
